FAERS Safety Report 9509859 (Version 1)
Quarter: 2013Q3

REPORT INFORMATION
  Report Type: Spontaneous
  Country: US (occurrence: US)
  Receive Date: 20130909
  Receipt Date: 20130909
  Transmission Date: 20140515
  Serious: No
  Sender: FDA-Public Use
  Company Number: US-BRISTOL-MYERS SQUIBB COMPANY-17091778

PATIENT
  Age: 26 Year
  Sex: Female
  Weight: 117.91 kg

DRUGS (1)
  1. ABILIFY [Suspect]

REACTIONS (5)
  - Weight increased [Unknown]
  - Asthenia [Unknown]
  - Somnolence [Unknown]
  - Insomnia [Unknown]
  - Parosmia [Unknown]
